FAERS Safety Report 8009901-9 (Version None)
Quarter: 2011Q4

REPORT INFORMATION
  Report Type: 
  Country: None (occurrence: None)
  Receive Date: 20111123
  Receipt Date: 20111007
  Transmission Date: 20120403
  Serious: No
  Sender: FDA-Public Use
  Company Number: 337540

PATIENT
  Sex: Female

DRUGS (1)
  1. VICTOZA [Suspect]
     Indication: TYPE 2 DIABETES MELLITUS
     Dosage: 1.2 MG,QD,SUBCUTANEOUS
     Route: 058
     Dates: start: 20110901, end: 20111007

REACTIONS (1)
  - ABDOMINAL PAIN [None]
